FAERS Safety Report 4424601-X (Version None)
Quarter: 2004Q3

REPORT INFORMATION
  Report Type: 
  Country: None (occurrence: None)
  Receive Date: 20040809
  Receipt Date: 20040726
  Transmission Date: 20050211
  Serious: Yes (Hospitalization)
  Sender: FDA-Public Use
  Company Number: 197476

PATIENT
  Age: 71 Year
  Sex: Female

DRUGS (8)
  1. AVONEX [Suspect]
     Indication: MULTIPLE SCLEROSIS
     Dosage: 30 MCG QW IM
     Route: 030
     Dates: start: 19971105
  2. ATIVAN [Concomitant]
  3. DITROPAN [Concomitant]
  4. BEXTRA [Concomitant]
  5. POTASSIUM [Concomitant]
  6. LASIX [Concomitant]
  7. ULTRACET [Concomitant]
  8. ACTONEL [Concomitant]

REACTIONS (2)
  - ANKLE FRACTURE [None]
  - FOOT FRACTURE [None]
